FAERS Safety Report 7365453-8 (Version None)
Quarter: 2011Q1

REPORT INFORMATION
  Report Type: 
  Country: None (occurrence: None)
  Receive Date: 20110317
  Receipt Date: 20110317
  Transmission Date: 20110831
  Serious: Yes (Other)
  Sender: FDA-Public Use
  Company Number: None

PATIENT
  Sex: Female

DRUGS (1)
  1. HUMIRA [Suspect]
     Dosage: 40MG EVERY 2 WKS SC
     Route: 058

REACTIONS (2)
  - DEVICE ISSUE [None]
  - UNDERDOSE [None]
